FAERS Safety Report 19001578 (Version 1)
Quarter: 2021Q1

REPORT INFORMATION
  Report Type: Spontaneous
  Country: US (occurrence: US)
  Receive Date: 20210311
  Receipt Date: 20210311
  Transmission Date: 20210420
  Serious: Yes (Life-Threatening)
  Sender: FDA-Public Use
  Company Number: None

PATIENT
  Sex: Male

DRUGS (1)
  1. EPTIFIBATIDE. [Suspect]
     Active Substance: EPTIFIBATIDE

REACTIONS (6)
  - Pyrexia [None]
  - Mean arterial pressure decreased [None]
  - Platelet count decreased [None]
  - Thrombocytopenia [None]
  - Illness [None]
  - Ventricular tachycardia [None]

NARRATIVE: CASE EVENT DATE: 20180720
